FAERS Safety Report 5837235-7 (Version None)
Quarter: 2008Q3

REPORT INFORMATION
  Report Type: 
  Country: None (occurrence: None)
  Receive Date: 20080807
  Receipt Date: 20080728
  Transmission Date: 20090109
  Serious: Yes (Other)
  Sender: FDA-Public Use
  Company Number: US-BAYER-200829539NA

PATIENT
  Age: 65 Year
  Sex: Male

DRUGS (7)
  1. MAGNEVIST [Suspect]
     Indication: NUCLEAR MAGNETIC RESONANCE IMAGING
     Dosage: TOTAL DAILY DOSE: 20 ML
     Dates: start: 20080728, end: 20080728
  2. SINEMET [Concomitant]
  3. METOPROLOL SUCCINATE [Concomitant]
  4. LIPITOR [Concomitant]
  5. AMANTADINE HCL [Concomitant]
  6. ZITHRO [Concomitant]
  7. CIPRO [Concomitant]

REACTIONS (3)
  - COUGH [None]
  - DYSPHONIA [None]
  - SNEEZING [None]
